FAERS Safety Report 7414169-8 (Version None)
Quarter: 2011Q2

REPORT INFORMATION
  Report Type: 
  Country: None (occurrence: None)
  Receive Date: 20110414
  Receipt Date: 20110412
  Transmission Date: 20111010
  Serious: Yes (Death)
  Sender: FDA-Public Use
  Company Number: CO-PFIZER INC-2011080791

PATIENT
  Age: 73 Year
  Sex: Female

DRUGS (3)
  1. LIPITOR [Suspect]
     Indication: DYSLIPIDAEMIA
     Dosage: 10 MG, 1X/DAY
     Route: 048
     Dates: start: 20041201
  2. FUROSEMIDE [Concomitant]
     Dosage: 40 MG, 2X/DAY
  3. ENALAPRIL [Concomitant]
     Dosage: 20 MG, 2X/DAY

REACTIONS (1)
  - DEATH [None]
